FAERS Safety Report 6850195-5 (Version None)
Quarter: 2010Q3

REPORT INFORMATION
  Report Type: 
  Country: None (occurrence: None)
  Receive Date: 20100716
  Receipt Date: 20071011
  Transmission Date: 20110219
  Serious: No
  Sender: FDA-Public Use
  Company Number: US-PFIZER INC-2007086521

PATIENT
  Sex: Female

DRUGS (3)
  1. CHANTIX [Suspect]
  2. CELEXA [Suspect]
  3. ALL OTHER THERAPEUTIC PRODUCTS [Suspect]

REACTIONS (2)
  - FATIGUE [None]
  - NAUSEA [None]
